FAERS Safety Report 19415380 (Version 2)
Quarter: 2021Q3

REPORT INFORMATION
  Report Type: Report from Study
  Country: IN (occurrence: IN)
  Receive Date: 20210615
  Receipt Date: 20210730
  Transmission Date: 20211014
  Serious: Yes (Death, Other)
  Sender: FDA-Public Use
  Company Number: NVSC2021IN079047

PATIENT
  Age: 53 Year
  Sex: Female

DRUGS (3)
  1. RAFINLAR [Suspect]
     Active Substance: DABRAFENIB
     Dosage: 150 MG IN MORNING AND 100 MG IN EVENING
     Route: 065
     Dates: start: 20210507
  2. RAFINLAR [Suspect]
     Active Substance: DABRAFENIB
     Indication: MALIGNANT MELANOMA
     Dosage: 100 MG, BID (TABLET)
     Route: 065
     Dates: start: 20200907, end: 20210506
  3. MEQSEL [Suspect]
     Active Substance: TRAMETINIB
     Indication: MALIGNANT MELANOMA
     Dosage: 2 MG, QD (TABLET)
     Route: 065
     Dates: start: 20200907

REACTIONS (5)
  - Malignant melanoma [Unknown]
  - Death [Fatal]
  - Malignant neoplasm progression [Unknown]
  - Product use issue [Unknown]
  - Metastases to central nervous system [Unknown]

NARRATIVE: CASE EVENT DATE: 20200907
